FAERS Safety Report 8071717-5 (Version None)
Quarter: 2012Q1

REPORT INFORMATION
  Report Type: 
  Country: None (occurrence: None)
  Receive Date: 20120125
  Receipt Date: 20120118
  Transmission Date: 20120608
  Serious: Yes (Hospitalization, Other)
  Sender: FDA-Public Use
  Company Number: US-RB-035247-11

PATIENT
  Age: 32 Year
  Sex: Male

DRUGS (10)
  1. KLONOPIN [Suspect]
     Route: 048
     Dates: start: 20100101, end: 20120101
  2. MULTIPLE VITAMINS [Concomitant]
     Indication: CARDIAC DISORDER
     Dosage: DAILY
     Route: 065
     Dates: start: 20110501
  3. LIPITOR [Concomitant]
     Indication: BLOOD CHOLESTEROL INCREASED
     Dosage: DAILY
     Route: 065
     Dates: start: 20100101
  4. LASIX [Concomitant]
     Indication: CARDIAC DISORDER
     Dosage: DAILY
     Route: 065
     Dates: start: 20110101
  5. LIPITOR [Concomitant]
     Indication: CARDIAC DISORDER
     Dosage: DAILY
     Route: 065
     Dates: start: 20100101
  6. PLAVIX [Concomitant]
     Indication: CARDIAC DISORDER
     Dosage: UNKNOWN DAILY
     Route: 065
     Dates: start: 20110401
  7. SUBOXONE [Suspect]
     Indication: DRUG DEPENDENCE
     Dosage: 32 MG TAPERED TO 16 MG DAILY
     Route: 060
     Dates: start: 20101101, end: 20110401
  8. SUBOXONE [Suspect]
     Route: 060
     Dates: start: 20110501, end: 20120101
  9. KLONOPIN [Suspect]
     Indication: MUSCLE SPASMS
     Route: 048
     Dates: start: 20100101, end: 20120101
  10. SUBOXONE [Suspect]
     Dosage: VARIED DOSES
     Route: 060
     Dates: start: 20120101

REACTIONS (12)
  - CONDITION AGGRAVATED [None]
  - OFF LABEL USE [None]
  - SPEECH DISORDER [None]
  - SUBSTANCE ABUSE [None]
  - PAIN IN EXTREMITY [None]
  - MYOCARDIAL INFARCTION [None]
  - WRONG TECHNIQUE IN DRUG USAGE PROCESS [None]
  - NECK PAIN [None]
  - DRUG WITHDRAWAL SYNDROME [None]
  - ARTERIAL OCCLUSIVE DISEASE [None]
  - BRAIN HYPOXIA [None]
  - COMA [None]
